FAERS Safety Report 10527039 (Version 1)
Quarter: 2014Q4

REPORT INFORMATION
  Report Type: Spontaneous
  Country: US (occurrence: None)
  Receive Date: 20141016
  Receipt Date: 20141016
  Transmission Date: 20150528
  Serious: Yes (Life-Threatening)
  Sender: FDA-Public Use
  Company Number: US-H14001-14-01058

PATIENT
  Age: 19 Year
  Sex: Female

DRUGS (8)
  1. BLOOD PRODUCTS (BLOOD AND RELATED PRODUCTS) (UNKNOWN) [Concomitant]
  2. GENERAL ANESTHESIA (ANESTHETICS, GENERAL) (UNKNOWN) [Concomitant]
  3. ANTIBIOTICS (ANTIBIOTICS) (UNKNOWN) [Concomitant]
     Active Substance: UNSPECIFIED INGREDIENT
  4. GLUCOSE (GLUCOSE) (UNKNOWN) (GLUCOSE) [Concomitant]
  5. ACETAMINOPHEN (PARACETAMOL) (UNKNOWN) (PARACETAMOL) [Concomitant]
     Active Substance: ACETAMINOPHEN
  6. MISOPROSTOL (MISOPROSTOL) (UNKNOWN) (MISOPROSTOL) [Concomitant]
  7. FRESH FROZEN PLASMA (PLASMA) (UNKNOWN) (PLASMA) [Concomitant]
  8. MIDAZOLAM [Suspect]
     Active Substance: MIDAZOLAM\MIDAZOLAM HYDROCHLORIDE
     Indication: SEDATION

REACTIONS (17)
  - Disseminated intravascular coagulation [None]
  - Sepsis [None]
  - Caesarean section [None]
  - Exposure during pregnancy [None]
  - Weight increased [None]
  - Hypotension [None]
  - Pancreatitis [None]
  - Acute fatty liver of pregnancy [None]
  - Abdominal pain [None]
  - Nausea [None]
  - Vomiting [None]
  - International normalised ratio increased [None]
  - Encephalopathy [None]
  - Foetal death [None]
  - Hepatic steatosis [None]
  - Mental status changes [None]
  - Blood lactic acid increased [None]
